FAERS Safety Report 17761399 (Version 4)
Quarter: 2024Q2

REPORT INFORMATION
  Report Type: Spontaneous
  Country: FI (occurrence: FI)
  Receive Date: 20200508
  Receipt Date: 20240522
  Transmission Date: 20240716
  Serious: Yes (Death, Life-Threatening, Hospitalization, Other)
  Sender: FDA-Public Use
  Company Number: FI-INDIVIOR US-INDV-124313-2020

PATIENT
  Age: 5 Decade
  Sex: Male

DRUGS (7)
  1. ALPRAZOLAM [Suspect]
     Active Substance: ALPRAZOLAM
     Indication: Product used for unknown indication
     Dosage: UNK
     Route: 065
  2. OXAZEPAM [Suspect]
     Active Substance: OXAZEPAM
     Indication: Product used for unknown indication
     Dosage: UNK
     Route: 065
  3. SUBOXONE [Suspect]
     Active Substance: BUPRENORPHINE HYDROCHLORIDE\NALOXONE HYDROCHLORIDE
     Indication: Drug dependence
     Dosage: UNK
     Route: 065
  4. DIAZEPAM [Suspect]
     Active Substance: DIAZEPAM
     Indication: Attention deficit hyperactivity disorder
     Dosage: UNK
     Route: 065
  5. BUPRENORPHINE [Suspect]
     Active Substance: BUPRENORPHINE
     Indication: Drug withdrawal maintenance therapy
     Dosage: UNK
     Route: 065
  6. NALOXONE [Concomitant]
     Active Substance: NALOXONE
     Indication: Drug withdrawal maintenance therapy
     Dosage: UNK
     Route: 065
  7. METHYLPHENIDATE [Concomitant]
     Active Substance: METHYLPHENIDATE
     Indication: Attention deficit hyperactivity disorder
     Dosage: UNK
     Route: 065

REACTIONS (11)
  - Exposure to extreme temperature [Fatal]
  - Toxicity to various agents [Fatal]
  - Respiratory depression [Fatal]
  - Cerebral congestion [Fatal]
  - Brain oedema [Fatal]
  - Pulmonary congestion [Fatal]
  - Pulmonary oedema [Fatal]
  - Hyperthermia [Fatal]
  - Drug abuse [Fatal]
  - Thermal burn [Unknown]
  - Skin abrasion [Unknown]
